FAERS Safety Report 7027464-1 (Version None)
Quarter: 2010Q3

REPORT INFORMATION
  Report Type: 
  Country: None (occurrence: None)
  Receive Date: 20100930
  Receipt Date: 20100921
  Transmission Date: 20110219
  Serious: No
  Sender: FDA-Public Use
  Company Number: 2010EU003221

PATIENT
  Age: 7 Year
  Sex: Female

DRUGS (5)
  1. TACROLIMUS [Suspect]
     Indication: DERMATITIS ATOPIC
     Dosage: 0.03 %, PRN, TOPICAL
     Route: 061
     Dates: start: 20080206, end: 20100601
  2. DERMOL (PREDNISOLONE) [Concomitant]
  3. EMOLENE (DIAZOLIDINYL UREA, DIMETICONE, PROPYLENE GLYCOL) [Concomitant]
  4. SYNALAR (NEOMYCIN) [Concomitant]
  5. METOSYN (FLUOCINONIDE) [Concomitant]

REACTIONS (1)
  - LYMPHADENOPATHY [None]
